FAERS Safety Report 18244760 (Version 1)
Quarter: 2020Q3

REPORT INFORMATION
  Report Type: Spontaneous
  Country: US (occurrence: US)
  Receive Date: 20200909
  Receipt Date: 20200909
  Transmission Date: 20201103
  Serious: No
  Sender: FDA-Public Use
  Company Number: US-GILEAD-2020-0493487

PATIENT
  Sex: Female

DRUGS (8)
  1. DEPAKOTE [Concomitant]
     Active Substance: DIVALPROEX SODIUM
  2. RISPERIDONE. [Concomitant]
     Active Substance: RISPERIDONE
  3. BUSPAR [Concomitant]
     Active Substance: BUSPIRONE HYDROCHLORIDE
  4. HYDROXYZINE HYDROCHLORIDE. [Concomitant]
     Active Substance: HYDROXYZINE HYDROCHLORIDE
  5. SOFOSBUVIR;VELPATASVIR [Suspect]
     Active Substance: SOFOSBUVIR\VELPATASVIR
     Indication: HEPATITIS C
     Dosage: 1 DOSAGE FORM, QD
     Route: 048
     Dates: start: 20200817
  6. GABAPENTIN. [Concomitant]
     Active Substance: GABAPENTIN
  7. CHLORPROMAZINE. [Concomitant]
     Active Substance: CHLORPROMAZINE
  8. BENZTROPINE [BENZATROPINE] [Concomitant]
     Active Substance: BENZTROPINE

REACTIONS (1)
  - Fatigue [Unknown]
